FAERS Safety Report 19839586 (Version 1)
Quarter: 2021Q3

REPORT INFORMATION
  Report Type: Spontaneous
  Country: DE (occurrence: DE)
  Receive Date: 20210915
  Receipt Date: 20210915
  Transmission Date: 20211014
  Serious: Yes (Hospitalization)
  Sender: FDA-Public Use
  Company Number: DE-MYLANLABS-2021M1061086

PATIENT
  Age: 27 Year
  Sex: Female

DRUGS (3)
  1. LORAZEPAM. [Suspect]
     Active Substance: LORAZEPAM
     Indication: RESTLESSNESS
     Dosage: 20 MILLIGRAM, QD (MAXIMUM DAILY DOSE 20 MG)
     Route: 065
  2. HALOPERIDOL. [Suspect]
     Active Substance: HALOPERIDOL
     Indication: RESTLESSNESS
     Dosage: 8 MILLIGRAM, QD (MAXIMUM DAILY DOSE 8 MG)
     Route: 048
  3. MIDAZOLAM. [Suspect]
     Active Substance: MIDAZOLAM
     Indication: RESTLESSNESS
     Dosage: UNK
     Route: 065

REACTIONS (5)
  - Chills [Recovered/Resolved]
  - Trismus [Recovered/Resolved]
  - Echolalia [Recovered/Resolved]
  - Catatonia [Recovered/Resolved]
  - Hyperkinesia [Recovered/Resolved]
